FAERS Safety Report 5243873-5 (Version None)
Quarter: 2007Q1

REPORT INFORMATION
  Report Type: 
  Country: None (occurrence: None)
  Receive Date: 20070220
  Receipt Date: 20070220
  Transmission Date: 20070707
  Serious: No
  Sender: FDA-Public Use
  Company Number: None

PATIENT
  Age: 24 Year
  Sex: Female
  Weight: 63.05 kg

DRUGS (2)
  1. AMNESTEEM [Suspect]
     Indication: ACNE
     Dosage: 40MG 2 DAILY PO 10MG 2 DAILY PO
     Route: 048
     Dates: start: 20060501
  2. AMNESTEEM [Suspect]
     Indication: ACNE
     Dosage: 40MG 2 DAILY PO 10MG 2 DAILY PO
     Route: 048
     Dates: start: 20070201

REACTIONS (2)
  - DRUG EXPOSURE DURING PREGNANCY [None]
  - PREGNANCY [None]
